FAERS Safety Report 9105200 (Version 2)
Quarter: 2013Q1

REPORT INFORMATION
  Report Type: Report from Study
  Country: US (occurrence: US)
  Receive Date: 20130220
  Receipt Date: 20130227
  Transmission Date: 20140127
  Serious: Yes (Hospitalization)
  Sender: FDA-Public Use
  Company Number: US-ACTELION-A-NJ2013-79624

PATIENT
  Age: 67 Year
  Sex: Female

DRUGS (3)
  1. VENTAVIS [Suspect]
     Indication: PULMONARY ARTERIAL HYPERTENSION
     Dosage: UNK
     Route: 055
  2. SILDENAFIL [Concomitant]
  3. LETAIRIS [Concomitant]

REACTIONS (7)
  - Haematochezia [Recovered/Resolved]
  - Fungal infection [Recovered/Resolved]
  - Thyroid function test abnormal [Recovered/Resolved]
  - Constipation [Recovered/Resolved]
  - Breast pain [Recovered/Resolved]
  - Insomnia [Recovered/Resolved]
  - Oedema [Recovered/Resolved]
